FAERS Safety Report 5329593-7 (Version None)
Quarter: 2007Q2

REPORT INFORMATION
  Report Type: 
  Country: None (occurrence: None)
  Receive Date: 20070227
  Receipt Date: 20060110
  Transmission Date: 20071010
  Serious: No
  Sender: FDA-Public Use
  Company Number: 423096

PATIENT
  Age: 50 Year
  Sex: Female
  Weight: 62.6 kg

DRUGS (6)
  1. ACCUTANE [Suspect]
     Indication: BRAIN NEOPLASM
     Dosage: 160 MG DAILY ORAL
     Route: 048
     Dates: start: 20050318
  2. THALOMID [Suspect]
     Indication: BRAIN NEOPLASM MALIGNANT
     Dosage: 300 MG DAILY ORAL
     Route: 048
     Dates: start: 20050318, end: 20050517
  3. KEPPRA [Concomitant]
  4. PROVIGIL [Concomitant]
  5. DECADRON [Concomitant]
  6. MEGACE [Concomitant]

REACTIONS (3)
  - HAEMATURIA [None]
  - HYPERTONIC BLADDER [None]
  - URGE INCONTINENCE [None]
